FAERS Safety Report 25113355 (Version 1)
Quarter: 2025Q1

REPORT INFORMATION
  Report Type: Spontaneous
  Country: US (occurrence: None)
  Receive Date: 20250322
  Receipt Date: 20250322
  Transmission Date: 20250409
  Serious: Yes (Other)
  Sender: FDA-CTU
  Company Number: None

PATIENT
  Age: 67 Year
  Sex: Female
  Weight: 68 kg

DRUGS (1)
  1. CEPHALEXIN [Suspect]
     Active Substance: CEPHALEXIN
     Indication: Infection
     Dosage: 20 CAPSULES  3 TIMES  DAY ORAL ?
     Route: 048
     Dates: start: 20250321, end: 20250321

REACTIONS (6)
  - Rhinorrhoea [None]
  - Oropharyngeal pain [None]
  - Eye pruritus [None]
  - Swelling of eyelid [None]
  - Nasal congestion [None]
  - Dyspnoea [None]

NARRATIVE: CASE EVENT DATE: 20250321
